FAERS Safety Report 22967889 (Version 3)
Quarter: 2024Q3

REPORT INFORMATION
  Report Type: Spontaneous
  Country: DE (occurrence: DE)
  Receive Date: 20230921
  Receipt Date: 20240701
  Transmission Date: 20241016
  Serious: Yes (Hospitalization)
  Sender: BAUSCH AND LOMB
  Company Number: DE-SANOFI-01748752

PATIENT
  Age: 72 Year
  Sex: Female
  Weight: 70 kg

DRUGS (10)
  1. DEXAMETHASONE [Suspect]
     Active Substance: DEXAMETHASONE
     Indication: Product used for unknown indication
     Dosage: UNKNOWN
     Route: 065
     Dates: start: 20230711, end: 20230724
  2. POMALIDOMIDE [Suspect]
     Active Substance: POMALIDOMIDE
     Indication: Product used for unknown indication
     Dosage: 4 MG
     Route: 065
     Dates: start: 20230711, end: 20230724
  3. ISATUXIMAB [Suspect]
     Active Substance: ISATUXIMAB
     Indication: Product used for unknown indication
     Dosage: TOTAL, UNK
     Route: 042
     Dates: start: 20230711
  4. ISATUXIMAB [Suspect]
     Active Substance: ISATUXIMAB
     Dosage: UNK UNK, TOTAL
     Route: 042
     Dates: start: 20230711
  5. ACYCLOVIR [Concomitant]
     Active Substance: ACYCLOVIR
     Indication: Product used for unknown indication
     Dosage: UNKNOWN
     Route: 065
     Dates: start: 2017, end: 202309
  6. BISOPROLOL [Concomitant]
     Active Substance: BISOPROLOL\BISOPROLOL FUMARATE
     Indication: Product used for unknown indication
     Dosage: UNKNOWN
     Route: 065
     Dates: start: 2021, end: 202309
  7. CALCIUM CARBONATE\CHOLECALCIFEROL [Concomitant]
     Active Substance: CALCIUM CARBONATE\CHOLECALCIFEROL
     Indication: Product used for unknown indication
     Dosage: UNKNOWN
     Route: 065
     Dates: start: 2021
  8. DENOSUMAB [Concomitant]
     Active Substance: DENOSUMAB
     Indication: Product used for unknown indication
     Dosage: UNKNOWN
     Route: 065
     Dates: start: 2021
  9. RIVAROXABAN [Concomitant]
     Active Substance: RIVAROXABAN
     Indication: Product used for unknown indication
     Dosage: UNKNOWN
     Route: 065
     Dates: start: 202206
  10. PANTOPRAZOLE [Concomitant]
     Active Substance: PANTOPRAZOLE
     Indication: Product used for unknown indication
     Dosage: UNKNOWN
     Route: 065
     Dates: start: 202307, end: 202309

REACTIONS (1)
  - General physical health deterioration [Recovered/Resolved]

NARRATIVE: CASE EVENT DATE: 20230712
